FAERS Safety Report 5021531-X (Version None)
Quarter: 2006Q2

REPORT INFORMATION
  Report Type: 
  Country: None (occurrence: None)
  Receive Date: 20060608
  Receipt Date: 20060606
  Transmission Date: 20061013
  Serious: Yes (Hospitalization)
  Sender: FDA-Public Use
  Company Number: US-BOEHRINGER INGELHEIM PHARMACEUTICALS, INC.-2006-DE-02915GD

PATIENT
  Age: 35 Year
  Sex: Male

DRUGS (15)
  1. TIPRANAVIR [Suspect]
     Indication: HIV INFECTION
  2. TENOFOVIR [Suspect]
     Indication: HIV INFECTION
  3. EMTRICITABINE [Suspect]
     Indication: HIV INFECTION
  4. RITONAVIR [Suspect]
     Indication: HIV INFECTION
  5. ENFUVIRTIDE [Suspect]
     Indication: HIV INFECTION
  6. TRAZODONE HCL [Concomitant]
  7. CITALOPRAM HYDROBROMIDE [Concomitant]
  8. GANCICLOVIR [Concomitant]
     Indication: ECTHYMA
     Route: 042
  9. BROAD-SPECTRUM ANTIBIOTICS [Concomitant]
     Indication: ECTHYMA
  10. DAPSONE [Concomitant]
  11. FLUCONAZOLE [Concomitant]
  12. GABAPENTIN [Concomitant]
  13. CLONAZEPAM [Concomitant]
  14. FOLATE [Concomitant]
  15. FLUDROCORTISONE [Concomitant]

REACTIONS (14)
  - BLOOD HIV RNA INCREASED [None]
  - CARDIOLIPIN ANTIBODY POSITIVE [None]
  - CD4 LYMPHOCYTES DECREASED [None]
  - DEEP VEIN THROMBOSIS [None]
  - DILATATION VENTRICULAR [None]
  - DIZZINESS EXERTIONAL [None]
  - ELECTROCARDIOGRAM T WAVE AMPLITUDE DECREASED [None]
  - GALLOP RHYTHM PRESENT [None]
  - HYPOTENSION [None]
  - LOSS OF CONSCIOUSNESS [None]
  - PULMONARY EMBOLISM [None]
  - SINUS TACHYCARDIA [None]
  - SYNCOPE [None]
  - TACHYCARDIA [None]
